FAERS Safety Report 19789110 (Version 1)
Quarter: 2021Q3

REPORT INFORMATION
  Report Type: Spontaneous
  Country: US (occurrence: US)
  Receive Date: 20210904
  Receipt Date: 20210904
  Transmission Date: 20211014
  Serious: Yes (Death, Hospitalization, Other)
  Sender: FDA-Public Use
  Company Number: US-HQ SPECIALTY-US-2021INT000154

PATIENT

DRUGS (3)
  1. CISPLATIN. [Suspect]
     Active Substance: CISPLATIN
     Indication: TRIPLE NEGATIVE BREAST CANCER
     Dosage: 75 MG/M2, (1 CYCLE)
     Route: 042
  2. CISPLATIN. [Suspect]
     Active Substance: CISPLATIN
     Dosage: 75 MG/M2, EVERY 21 DAYS
     Route: 042
  3. ADAVOSERTIB. [Suspect]
     Active Substance: ADAVOSERTIB
     Indication: TRIPLE NEGATIVE BREAST CANCER
     Dosage: 200 MG, BID (FOR 5 DOSES OVER 2.5 DAYS, FROM DAYS 1?3)

REACTIONS (7)
  - Hypotension [Fatal]
  - Sepsis [Fatal]
  - Duodenitis [Fatal]
  - Respiratory failure [Fatal]
  - Atrial fibrillation [Fatal]
  - Lactic acidosis [Fatal]
  - Abdominal pain [Fatal]
